FAERS Safety Report 8454717-2 (Version None)
Quarter: 2012Q2

REPORT INFORMATION
  Report Type: 
  Country: None (occurrence: None)
  Receive Date: 20120614
  Receipt Date: 20120530
  Transmission Date: 20120825
  Serious: Yes (Hospitalization, Disabling, Other)
  Sender: FDA-Public Use
  Company Number: JPI-P-020822

PATIENT
  Age: 60 Year
  Sex: Female
  Weight: 56.6996 kg

DRUGS (25)
  1. HYDROCHLOROTHIAZIDE [Concomitant]
  2. CYCLOSPORINE [Concomitant]
  3. ASPIRIN [Concomitant]
  4. XYREM [Suspect]
     Indication: INSOMNIA
     Dosage: 6 GM (3 GM, 2 IN 1 D), ORAL; 9 GM (4.5 GM, 2 IN 1 D), ORAL; 9 GM (4.5, GM, 2 IN 1 D), ORAL
     Route: 048
     Dates: start: 20110726
  5. XYREM [Suspect]
     Indication: SLEEP DISORDER
     Dosage: 6 GM (3 GM, 2 IN 1 D), ORAL; 9 GM (4.5 GM, 2 IN 1 D), ORAL; 9 GM (4.5, GM, 2 IN 1 D), ORAL
     Route: 048
     Dates: start: 20110726
  6. XYREM [Suspect]
     Indication: INSOMNIA
     Dosage: 6 GM (3 GM, 2 IN 1 D), ORAL; 9 GM (4.5 GM, 2 IN 1 D), ORAL; 9 GM (4.5, GM, 2 IN 1 D), ORAL
     Route: 048
     Dates: start: 20110831, end: 20120401
  7. XYREM [Suspect]
     Indication: SLEEP DISORDER
     Dosage: 6 GM (3 GM, 2 IN 1 D), ORAL; 9 GM (4.5 GM, 2 IN 1 D), ORAL; 9 GM (4.5, GM, 2 IN 1 D), ORAL
     Route: 048
     Dates: start: 20110831, end: 20120401
  8. XYREM [Suspect]
     Indication: INSOMNIA
     Dosage: 6 GM (3 GM, 2 IN 1 D), ORAL; 9 GM (4.5 GM, 2 IN 1 D), ORAL; 9 GM (4.5, GM, 2 IN 1 D), ORAL
     Route: 048
     Dates: start: 20120101
  9. XYREM [Suspect]
     Indication: SLEEP DISORDER
     Dosage: 6 GM (3 GM, 2 IN 1 D), ORAL; 9 GM (4.5 GM, 2 IN 1 D), ORAL; 9 GM (4.5, GM, 2 IN 1 D), ORAL
     Route: 048
     Dates: start: 20120101
  10. NIACIN [Concomitant]
  11. PANTOPRAZOLE [Concomitant]
  12. AYR SINUS RINSE KIT [Concomitant]
  13. LACTOBACILLUS RHAMNOSUS [Concomitant]
  14. CLONAZEPAM [Concomitant]
  15. SIMVASTATIN [Concomitant]
  16. GABAPENTIN [Concomitant]
  17. RAMIPRIL [Concomitant]
  18. DESVENLAFAXINE SUCCINATE [Concomitant]
  19. ASPIRIN [Concomitant]
  20. ASCORBIC ACID [Concomitant]
  21. VITAMIN D [Concomitant]
  22. ZOLPIDEM [Concomitant]
  23. DIVALPROEX SODIUM [Suspect]
     Indication: AGORAPHOBIA
     Dates: start: 20120519
  24. FISH OIL [Concomitant]
  25. VITAMIN B COMPLEX CAP [Concomitant]

REACTIONS (23)
  - BLOOD PRESSURE SYSTOLIC INCREASED [None]
  - DECREASED APPETITE [None]
  - INSOMNIA [None]
  - LIVER DISORDER [None]
  - AGORAPHOBIA [None]
  - APHAGIA [None]
  - SUICIDAL IDEATION [None]
  - CONDITION AGGRAVATED [None]
  - SELF INJURIOUS BEHAVIOUR [None]
  - FATIGUE [None]
  - BLOOD CHOLESTEROL INCREASED [None]
  - BLOOD GLUCOSE INCREASED [None]
  - SLEEP DISORDER [None]
  - DEPRESSION [None]
  - CATARACT OPERATION [None]
  - BLOOD PRESSURE INCREASED [None]
  - LOW DENSITY LIPOPROTEIN INCREASED [None]
  - WEIGHT INCREASED [None]
  - BLOOD PRESSURE DECREASED [None]
  - NAUSEA [None]
  - PARAESTHESIA [None]
  - HEAD INJURY [None]
  - VISION BLURRED [None]
